FAERS Safety Report 9500470 (Version 4)
Quarter: 2015Q2

REPORT INFORMATION
  Report Type: Spontaneous
  Country: US (occurrence: US)
  Receive Date: 20130905
  Receipt Date: 20150520
  Transmission Date: 20150821
  Serious: Yes (Hospitalization)
  Sender: FDA-Public Use
  Company Number: US-BAYER-2013-104915

PATIENT
  Age: 22 Year
  Sex: Female
  Weight: 118 kg

DRUGS (7)
  1. MELATONIN [Concomitant]
     Active Substance: MELATONIN
     Indication: INSOMNIA
     Dosage: 3 MG, AT NIGHT AS NEEDED
  2. AMOXICILLIN. [Concomitant]
     Active Substance: AMOXICILLIN
     Dosage: 500 MG, TID
  3. ONDANSETRON [Concomitant]
     Active Substance: ONDANSETRON
     Dosage: 8 MG, EVERY 8 AS NEEDED
  4. YASMIN [Suspect]
     Active Substance: DROSPIRENONE\ETHINYL ESTRADIOL
     Indication: SKIN DISORDER
     Dosage: UNK
     Dates: start: 2011, end: 2013
  5. HYDROMORPHONE [Concomitant]
     Active Substance: HYDROMORPHONE
  6. OXYCODONE/APAP [Concomitant]
     Active Substance: ACETAMINOPHEN\OXYCODONE HYDROCHLORIDE
     Dosage: 5-325 MG EVERY 6 HOURS AS NEEDED
  7. YASMIN [Suspect]
     Active Substance: DROSPIRENONE\ETHINYL ESTRADIOL
     Indication: MENSTRUATION IRREGULAR

REACTIONS (12)
  - Anxiety [None]
  - Pain [None]
  - Deep vein thrombosis [None]
  - General physical health deterioration [None]
  - Chest pain [None]
  - Pain in extremity [None]
  - Injury [None]
  - Emotional distress [None]
  - Abdominal pain [None]
  - Product use issue [None]
  - Pulmonary embolism [None]
  - Dyspnoea [None]

NARRATIVE: CASE EVENT DATE: 20130401
